FAERS Safety Report 13306983 (Version 1)
Quarter: 2017Q1

REPORT INFORMATION
  Report Type: Spontaneous
  Country: IT (occurrence: IT)
  Receive Date: 20170308
  Receipt Date: 20170308
  Transmission Date: 20170428
  Serious: Yes (Other)
  Sender: FDA-Public Use
  Company Number: IT-BAYER-2017-044403

PATIENT
  Age: 53 Year
  Sex: Male

DRUGS (3)
  1. PARACETAMOL [Concomitant]
     Active Substance: ACETAMINOPHEN
     Dosage: UNK
     Route: 048
     Dates: start: 20161021, end: 20161021
  2. ACETYLSALICYLIC ACID (} 100 MG) [Suspect]
     Active Substance: ASPIRIN
     Indication: INFLUENZA
     Dosage: UNK
     Dates: start: 20161022
  3. VIVIN C 200 [Concomitant]
     Dosage: UNK
     Route: 048
     Dates: start: 20161022, end: 20161022

REACTIONS (3)
  - Urticaria [Unknown]
  - Angioedema [Unknown]
  - Pruritus [Unknown]

NARRATIVE: CASE EVENT DATE: 20161023
